FAERS Safety Report 10007122 (Version 1)
Quarter: 2014Q1

REPORT INFORMATION
  Report Type: Spontaneous
  Country: US (occurrence: None)
  Receive Date: 20140311
  Receipt Date: 20140311
  Transmission Date: 20141002
  Serious: Yes (Other)
  Sender: FDA-Public Use
  Company Number: 2014SA029956

PATIENT
  Age: 34 Year
  Sex: Female
  Weight: 81.3 kg

DRUGS (10)
  1. BLEOMYCIN (SALT NO SPECIFIED)/UNKNOWN/UNKNOWN [Suspect]
     Indication: HODGKIN^S DISEASE
     Route: 042
  2. DACARBAZINE/UNKNOWN/UNKNOWN [Suspect]
     Indication: HODGKIN^S DISEASE
  3. DEXAMETHASONE/UNKNOWN/UNKNOWN [Suspect]
     Indication: PRODUCT USED FOR UNKNOWN INDICATION
  4. DOXORUBICIN/UNKNOWN/UNKNOWN [Suspect]
     Indication: HODGKIN^S DISEASE
     Route: 042
  5. DIPHENHYDRAMINE/UNKNOWN/UNKNOWN [Suspect]
     Indication: PRODUCT USED FOR UNKNOWN INDICATION
  6. ONDANSETRON HYDROCHLORIDE/UNKNOWN/UNKNOWN [Suspect]
     Indication: PRODUCT USED FOR UNKNOWN INDICATION
  7. PALONSETRON [Concomitant]
  8. VITAMIN D [Concomitant]
  9. FERROUS SULFATE [Concomitant]
  10. VINBLASTINE [Suspect]
     Indication: HODGKIN^S DISEASE
     Route: 042

REACTIONS (3)
  - Hypotension [None]
  - Tachycardia [None]
  - Pregnancy [None]
